FAERS Safety Report 10202952 (Version 7)
Quarter: 2016Q3

REPORT INFORMATION
  Report Type: Spontaneous
  Country: US (occurrence: US)
  Receive Date: 20140528
  Receipt Date: 20160705
  Transmission Date: 20161108
  Serious: Yes (Hospitalization, Other)
  Sender: FDA-Public Use
  Company Number: US-GILEAD-2014-0103383

PATIENT
  Age: 56 Year
  Sex: Male
  Weight: 70.75 kg

DRUGS (8)
  1. RIBAVIRIN. [Suspect]
     Active Substance: RIBAVIRIN
     Indication: HEPATITIS C
     Dosage: 1000 MG, UNK
     Route: 048
     Dates: start: 201404, end: 20140517
  2. ATENOLOL. [Concomitant]
     Active Substance: ATENOLOL
  3. ATIVAN [Concomitant]
     Active Substance: LORAZEPAM
  4. PERCOCET                           /00446701/ [Concomitant]
     Active Substance: ACETAMINOPHEN\OXYCODONE HYDROCHLORIDE\OXYCODONE TEREPHTHALATE
  5. SOVALDI [Suspect]
     Active Substance: SOFOSBUVIR
     Indication: HEPATITIS C
     Dosage: 1 DF, QD
     Route: 048
     Dates: start: 20140411, end: 20140517
  6. MS CONTIN [Concomitant]
     Active Substance: MORPHINE SULFATE
  7. BENTYL [Concomitant]
     Active Substance: DICYCLOMINE HYDROCHLORIDE
  8. ZOFRAN [Concomitant]
     Active Substance: ONDANSETRON HYDROCHLORIDE

REACTIONS (8)
  - Cardiac disorder [Recovered/Resolved]
  - Drug ineffective [Unknown]
  - Oedema peripheral [Unknown]
  - Chest pain [Unknown]
  - Hepatitis C [Recovered/Resolved]
  - Angina pectoris [Recovered/Resolved]
  - Myocardial infarction [Unknown]
  - Incorrect drug administration duration [Recovered/Resolved]

NARRATIVE: CASE EVENT DATE: 20140514
